FAERS Safety Report 8939716 (Version 1)
Quarter: 2012Q4

REPORT INFORMATION
  Report Type: 
  Country: US (occurrence: US)
  Receive Date: 20121130
  Receipt Date: 20121130
  Transmission Date: 20130627
  Serious: Yes (Hospitalization)
  Sender: FDA-Public Use
  Company Number: PHHO2011US03083

PATIENT
  Age: 53 Year
  Sex: Male
  Weight: 93 kg

DRUGS (12)
  1. DIGOXIN [Suspect]
     Dosage: 0.125 mg, QD
     Route: 048
     Dates: start: 20091217, end: 20110208
  2. PLACEBO [Suspect]
     Indication: CARDIAC FAILURE ACUTE
     Route: 048
     Dates: start: 20110114
  3. CARVEDILOL [Suspect]
     Indication: CARDIAC FAILURE CONGESTIVE
     Dosage: 12.5 mg, BID
     Route: 048
     Dates: start: 20110124
  4. LISINOPRIL [Concomitant]
     Indication: CARDIAC FAILURE CONGESTIVE
     Dosage: 40 mg, QD
     Route: 048
     Dates: start: 20091217
  5. FUROSEMIDE [Concomitant]
     Indication: CARDIAC FAILURE CONGESTIVE
     Dosage: 20 mg, BID
     Route: 048
     Dates: start: 20110127
  6. ASPIRIN [Concomitant]
     Indication: CARDIOVASCULAR EVENT PROPHYLAXIS
     Dosage: 81 mg, QD
     Route: 048
     Dates: start: 20090127
  7. AMLODIPINE BESYLATE [Concomitant]
     Indication: HYPERTENSION
     Dosage: 10 mg, QD
     Route: 048
     Dates: start: 20091217
  8. HYDRALAZINE [Concomitant]
     Indication: HYPERTENSION
     Dosage: 25 mg, BID
     Route: 048
     Dates: start: 20110117
  9. ISOSORBIDE MONONITRATE [Concomitant]
     Indication: HYPERTENSION
     Dosage: 30 mg, QD
     Route: 048
     Dates: start: 20091217
  10. NIACIN [Concomitant]
     Indication: HYPERLIPIDAEMIA
     Dosage: 500 mg, QD
     Route: 048
     Dates: start: 20091217
  11. SIMVASTATIN [Concomitant]
     Indication: HYPERLIPIDAEMIA
     Dosage: 40 mg, QD
     Route: 048
     Dates: start: 20110114
  12. WARFARIN [Concomitant]
     Indication: ATRIAL FIBRILLATION
     Dosage: 5 mg, QD
     Dates: start: 20110114

REACTIONS (4)
  - Presyncope [Recovered/Resolved]
  - Dizziness [Recovered/Resolved]
  - Hyperhidrosis [Recovered/Resolved]
  - Heart rate decreased [Recovered/Resolved]
